FAERS Safety Report 4717789-4 (Version None)
Quarter: 2005Q3

REPORT INFORMATION
  Report Type: 
  Country: None (occurrence: None)
  Receive Date: 20050715
  Receipt Date: 20040924
  Transmission Date: 20060218
  Serious: Yes (Death)
  Sender: FDA-Public Use
  Company Number: 2004-00570

PATIENT

DRUGS (1)
  1. INTEGRILIN [Suspect]
     Dosage: INTRAVENOUS
     Route: 042
     Dates: start: 20010101

REACTIONS (1)
  - CATHETER SITE HAEMORRHAGE [None]
